FAERS Safety Report 21786454 (Version 1)
Quarter: 2022Q4

REPORT INFORMATION
  Report Type: Spontaneous
  Country: NL (occurrence: NL)
  Receive Date: 20221228
  Receipt Date: 20221228
  Transmission Date: 20230113
  Serious: Yes (Death, Hospitalization, Other)
  Sender: FDA-Public Use
  Company Number: NL-002147023-PHHY2009NL14646

PATIENT
  Age: 66 Year
  Sex: Male

DRUGS (5)
  1. CYCLOSPORINE [Suspect]
     Active Substance: CYCLOSPORINE
     Indication: Allogenic stem cell transplantation
     Dosage: UNK
     Route: 065
  2. CYCLOSPORINE [Suspect]
     Active Substance: CYCLOSPORINE
     Indication: Immunosuppressant drug therapy
  3. MYCOPHENOLIC ACID [Suspect]
     Active Substance: MYCOPHENOLIC ACID
     Indication: Allogenic stem cell transplantation
     Dosage: UNK
     Route: 065
  4. PREDNISONE [Suspect]
     Active Substance: PREDNISONE
     Indication: Immunosuppressant drug therapy
     Dosage: UNK
     Route: 065
  5. PREDNISONE [Suspect]
     Active Substance: PREDNISONE
     Indication: Allogenic stem cell transplantation

REACTIONS (10)
  - Abdominal sepsis [Fatal]
  - Bacteraemia [Fatal]
  - Graft versus host disease [Fatal]
  - Pneumonia influenzal [Fatal]
  - Respiratory failure [Fatal]
  - Dyspnoea [Fatal]
  - Influenza [Fatal]
  - Lymphopenia [Fatal]
  - Pyrexia [Fatal]
  - Nosocomial infection [Unknown]

NARRATIVE: CASE EVENT DATE: 20080214
